FAERS Safety Report 22175787 (Version 1)
Quarter: 2023Q2

REPORT INFORMATION
  Report Type: Spontaneous
  Country: US (occurrence: None)
  Receive Date: 20230404
  Receipt Date: 20230404
  Transmission Date: 20230722
  Serious: Yes (Life-Threatening, Hospitalization, Disabling, Other)
  Sender: FDA-Public Use
  Company Number: None

PATIENT
  Age: 54 Year
  Sex: Female
  Weight: 49.5 kg

DRUGS (2)
  1. MULTIHANCE [Suspect]
     Active Substance: GADOBENATE DIMEGLUMINE
     Indication: Magnetic resonance imaging
  2. GADOBUTROL [Suspect]
     Active Substance: GADOBUTROL

REACTIONS (1)
  - Nephrogenic systemic fibrosis [None]

NARRATIVE: CASE EVENT DATE: 20130903
